FAERS Safety Report 9377810 (Version 1)
Quarter: 2013Q3

REPORT INFORMATION
  Report Type: Spontaneous
  Country: DE (occurrence: DE)
  Receive Date: 20130701
  Receipt Date: 20130701
  Transmission Date: 20140515
  Serious: Yes (Hospitalization, Other)
  Sender: FDA-Public Use
  Company Number: GXKR2013DE002269

PATIENT
  Sex: 0

DRUGS (4)
  1. LEFLUNOMIDE [Suspect]
     Indication: RHEUMATOID ARTHRITIS
     Dosage: 20 MG, UNK
     Route: 048
     Dates: start: 201211, end: 20130416
  2. ATORVASTATIN [Concomitant]
     Indication: HYPERCHOLESTEROLAEMIA
     Dosage: 40 MG, UNK
     Route: 048
  3. XARELTO [Concomitant]
     Indication: ATRIAL FIBRILLATION
     Dosage: 15 MG, UNK
     Route: 048
  4. CANDESARTAN [Concomitant]
     Indication: HYPERTENSION
     Dosage: 16 MG, UNK
     Route: 048

REACTIONS (1)
  - Posterior reversible encephalopathy syndrome [Recovered/Resolved]
